FAERS Safety Report 13272311 (Version 1)
Quarter: 2017Q1

REPORT INFORMATION
  Report Type: Spontaneous
  Country: US (occurrence: US)
  Receive Date: 20170227
  Receipt Date: 20170227
  Transmission Date: 20170428
  Serious: No
  Sender: FDA-Public Use
  Company Number: US-009507513-1702USA008481

PATIENT
  Age: 35 Year
  Sex: Female
  Weight: 86.17 kg

DRUGS (1)
  1. NEXPLANON [Suspect]
     Active Substance: ETONOGESTREL
     Indication: CONTRACEPTION
     Dosage: 3 YEAR IMPLANT
     Route: 059
     Dates: start: 20140110

REACTIONS (5)
  - Nausea [Unknown]
  - Incorrect drug administration duration [Unknown]
  - Menstruation irregular [Unknown]
  - Dizziness [Unknown]
  - Breast tenderness [Unknown]

NARRATIVE: CASE EVENT DATE: 20160112
